FAERS Safety Report 4467616-8 (Version None)
Quarter: 2004Q4

REPORT INFORMATION
  Report Type: 
  Country: None (occurrence: None)
  Receive Date: 20041004
  Receipt Date: 20040920
  Transmission Date: 20050328
  Serious: Yes (Other)
  Sender: FDA-Public Use
  Company Number: 209165

PATIENT
  Age: 54 Year
  Sex: Female
  Weight: 42.6 kg

DRUGS (4)
  1. AVASTIN [Suspect]
     Indication: COLORECTAL CANCER METASTATIC
     Dosage: 225 MG, Q2W, INTRAVENOUS
     Route: 042
     Dates: start: 20040421, end: 20040801
  2. OXALIPLATIN [Concomitant]
  3. FLUOROURACIL [Concomitant]
  4. LEUCOVORIN CALCIUM [Concomitant]

REACTIONS (6)
  - ABDOMINAL DISTENSION [None]
  - HEPATIC CIRRHOSIS [None]
  - PORTAL HYPERTENSION [None]
  - POST PROCEDURAL HAEMORRHAGE [None]
  - STOMA SITE REACTION [None]
  - VARICOSE VEIN [None]
